FAERS Safety Report 6938303-9 (Version None)
Quarter: 2010Q3

REPORT INFORMATION
  Report Type: 
  Country: None (occurrence: None)
  Receive Date: 20100824
  Receipt Date: 20100812
  Transmission Date: 20110219
  Serious: Yes (Other)
  Sender: FDA-Public Use
  Company Number: NL-PFIZER INC-2010098371

PATIENT
  Age: 79 Year
  Sex: Female
  Weight: 58 kg

DRUGS (16)
  1. ECALTA [Suspect]
     Indication: PERITONITIS
     Dosage: 200 MG, UNK
     Route: 042
     Dates: start: 20100802, end: 20100802
  2. NEXIUM [Concomitant]
     Dosage: 40 MG, 1X/DAY
     Route: 042
  3. MOVICOLON [Concomitant]
  4. FRAGMIN [Concomitant]
     Dosage: 0.2 ML, 1X/DAY
     Route: 058
  5. CORDARONE [Concomitant]
  6. FUROSEMIDE [Concomitant]
  7. SOLU-CORTEF [Concomitant]
     Dosage: 100 MG, 3X/DAY
     Route: 042
  8. CEFUROXIME [Concomitant]
     Dosage: 750 MG, 2X/DAY
     Route: 042
  9. METRONIDAZOLE [Concomitant]
     Dosage: 100 ML, 3X/DAY
  10. PARACETAMOL [Concomitant]
     Dosage: 100 ML, 4X/DAY
     Route: 042
  11. OXAZEPAM [Concomitant]
     Dosage: 10 MG, AS NEEDED
  12. BERODUAL [Concomitant]
     Dosage: UNK
  13. STOMATOLOGICALS, MOUTH PREPARATIONS [Concomitant]
     Dosage: UNK
  14. SODIUM BICARBONATE [Concomitant]
     Dosage: 100 ML, 1X/DAY
  15. METHYLCELLULOSE [Concomitant]
     Dosage: 1 GTT, 2X/DAY
  16. SOLUTIONS FOR PARENTERAL NUTRITION [Concomitant]
     Dosage: ONCE DAILY

REACTIONS (1)
  - MYOCLONIC EPILEPSY [None]
